APPROVED DRUG PRODUCT: ADALAT
Active Ingredient: NIFEDIPINE
Strength: 10MG
Dosage Form/Route: CAPSULE;ORAL
Application: N019478 | Product #001
Applicant: BAYER PHARMACEUTICALS CORP
Approved: Nov 27, 1985 | RLD: No | RS: No | Type: DISCN